FAERS Safety Report 8574671-2 (Version None)
Quarter: 2012Q3

REPORT INFORMATION
  Report Type: 
  Country: None (occurrence: None)
  Receive Date: 20120807
  Receipt Date: 20120727
  Transmission Date: 20120928
  Serious: Yes (Life-Threatening, Hospitalization, Other)
  Sender: FDA-Public Use
  Company Number: US-BRISTOL-MYERS SQUIBB COMPANY-15264021

PATIENT
  Age: 65 Year
  Sex: Female
  Weight: 36 kg

DRUGS (9)
  1. EMEND [Concomitant]
     Indication: NAUSEA
     Dosage: 2 TO 3 POST CISPLATIN
     Route: 065
  2. HYPROMELLOSE [Concomitant]
  3. ZOFRAN [Concomitant]
     Indication: NAUSEA
     Dosage: FOR 3 DAYS POST CISPLATIN
     Route: 065
  4. ARTIFICIAL TEARS [Concomitant]
     Route: 047
  5. CISPLATIN [Suspect]
     Indication: HEAD AND NECK CANCER
     Dosage: WITHDRAWN ON 30AUG10
     Route: 042
     Dates: start: 20100816, end: 20100816
  6. LEVOTHYROXINE SODIUM [Concomitant]
     Route: 065
  7. DEXAMETHASONE [Concomitant]
     Dosage: 2 DF=2TAB 2X/DAY ON DAYS 2-4 POST CISPLAIN 4MG
     Route: 048
  8. FLUOROURACIL [Suspect]
     Indication: HEAD AND NECK CANCER
     Route: 042
     Dates: start: 20100816, end: 20100820
  9. OXYCODONE HCL [Concomitant]
     Indication: PAIN
     Dosage: 1DF= 2 TO 4 TAB AT 4 HOURS AS NEEDED  5MG
     Route: 048

REACTIONS (7)
  - NAUSEA [None]
  - FATIGUE [None]
  - STOMATITIS [None]
  - LEUKOPENIA [None]
  - NEUTROPENIA [None]
  - HYPERKALAEMIA [None]
  - DEHYDRATION [None]
